FAERS Safety Report 6199712-1 (Version None)
Quarter: 2009Q2

REPORT INFORMATION
  Report Type: 
  Country: None (occurrence: None)
  Receive Date: 20090522
  Receipt Date: 20090511
  Transmission Date: 20091009
  Serious: Yes (Disabling)
  Sender: FDA-Public Use
  Company Number: DE-PFIZER INC-2009205729

PATIENT
  Age: 69 Year

DRUGS (2)
  1. SOMATROPIN [Suspect]
     Indication: GROWTH HORMONE DEFICIENCY
     Dosage: 0.1 MG, 1X/DAY
     Route: 058
     Dates: start: 20080307
  2. TESTOSTERONE CYPIONATE [Suspect]
     Dosage: UNK
     Route: 030
     Dates: start: 20080307, end: 20090424

REACTIONS (1)
  - PROSTATE CANCER [None]
